FAERS Safety Report 9421079 (Version 1)
Quarter: 2013Q3

REPORT INFORMATION
  Report Type: Spontaneous
  Country: AU (occurrence: None)
  Receive Date: 20130724
  Receipt Date: 20130724
  Transmission Date: 20140515
  Serious: No
  Sender: FDA-Public Use
  Company Number: 2013AP006590

PATIENT
  Age: 25 Year
  Sex: Female

DRUGS (4)
  1. LAMOTRIGINE (LAMOTRIGINE) [Suspect]
  2. AMOXICILLIN (AMOXICILLIN) [Suspect]
  3. TOPIRAMATE (TOPIRAMATE) [Suspect]
  4. OXCARBAZEPINE (OXCARBAZEPINE) TABLET, 300MG [Suspect]

REACTIONS (2)
  - Abortion spontaneous [None]
  - Maternal exposure during pregnancy [None]
